FAERS Safety Report 24060104 (Version 1)
Quarter: 2024Q3

REPORT INFORMATION
  Report Type: Spontaneous
  Country: US (occurrence: US)
  Receive Date: 20240708
  Receipt Date: 20240708
  Transmission Date: 20241017
  Serious: No
  Sender: ABBVIE
  Company Number: US-ABBVIE-5822986

PATIENT
  Age: 64 Year
  Sex: Female

DRUGS (3)
  1. BOTOX [Suspect]
     Active Substance: ONABOTULINUMTOXINA
     Indication: Skin cosmetic procedure
     Dosage: FORM STRENGTH: 100 UNIT
     Route: 030
  2. BOTOX [Suspect]
     Active Substance: ONABOTULINUMTOXINA
     Indication: Skin cosmetic procedure
     Dosage: FORM STRENGTH: 100 UNIT
     Route: 030
     Dates: start: 20240322, end: 20240322
  3. UPNEEQ [Concomitant]
     Active Substance: OXYMETAZOLINE HYDROCHLORIDE
     Indication: Eye disorder

REACTIONS (6)
  - Depression [Recovering/Resolving]
  - Visual field defect [Recovering/Resolving]
  - Eye irritation [Recovering/Resolving]
  - Alopecia [Recovering/Resolving]
  - Eye pain [Recovering/Resolving]
  - Facial paralysis [Recovering/Resolving]

NARRATIVE: CASE EVENT DATE: 20240322
